FAERS Safety Report 18234695 (Version 1)
Quarter: 2020Q3

REPORT INFORMATION
  Report Type: Spontaneous
  Country: AR (occurrence: AR)
  Receive Date: 20200905
  Receipt Date: 20200905
  Transmission Date: 20201103
  Serious: Yes (Other)
  Sender: FDA-Public Use
  Company Number: AR-AMGEN-ARGSP2020144295

PATIENT
  Age: 69 Year
  Sex: Female

DRUGS (1)
  1. ENBREL [Suspect]
     Active Substance: ETANERCEPT
     Indication: RHEUMATOID ARTHRITIS
     Dosage: 50 MG, WEEKLY (1 DOSE PER WEEK)
     Route: 065
     Dates: start: 20191201

REACTIONS (5)
  - Chondropathy [Unknown]
  - Genital herpes [Unknown]
  - Vaginitis chlamydial [Unknown]
  - Oral herpes [Unknown]
  - Oral discomfort [Unknown]

NARRATIVE: CASE EVENT DATE: 202004
